FAERS Safety Report 9176037 (Version 2)
Quarter: 2013Q2

REPORT INFORMATION
  Report Type: Spontaneous
  Country: US (occurrence: US)
  Receive Date: 20130320
  Receipt Date: 20130410
  Transmission Date: 20140414
  Serious: No
  Sender: FDA-Public Use
  Company Number: US-009507513-1303USA006409

PATIENT
  Age: 54 Year
  Sex: Female

DRUGS (3)
  1. SAPHRIS [Suspect]
     Dosage: UNK
     Route: 048
     Dates: start: 201212, end: 20130326
  2. ATIVAN [Concomitant]
  3. CYMBALTA [Concomitant]

REACTIONS (16)
  - Sensation of foreign body [Not Recovered/Not Resolved]
  - Fluid retention [Not Recovered/Not Resolved]
  - Skin fissures [Not Recovered/Not Resolved]
  - Blister [Not Recovered/Not Resolved]
  - Sensitisation [Not Recovered/Not Resolved]
  - Burning sensation [Not Recovered/Not Resolved]
  - Urticaria thermal [Not Recovered/Not Resolved]
  - Vulvovaginal pain [Not Recovered/Not Resolved]
  - Pain [Not Recovered/Not Resolved]
  - Increased upper airway secretion [Not Recovered/Not Resolved]
  - Insomnia [Not Recovered/Not Resolved]
  - Irritability [Not Recovered/Not Resolved]
  - Pain in extremity [Not Recovered/Not Resolved]
  - Pain in extremity [Not Recovered/Not Resolved]
  - Tongue blistering [Not Recovered/Not Resolved]
  - Glossodynia [Not Recovered/Not Resolved]
